FAERS Safety Report 21853061 (Version 1)
Quarter: 2023Q1

REPORT INFORMATION
  Report Type: Report from Study
  Country: US (occurrence: US)
  Receive Date: 20230112
  Receipt Date: 20230112
  Transmission Date: 20230418
  Serious: Yes (Other)
  Sender: FDA-Public Use
  Company Number: US-002147023-NVSC2023US004930

PATIENT
  Sex: Female

DRUGS (1)
  1. KISQALI [Suspect]
     Active Substance: RIBOCICLIB
     Indication: Breast cancer
     Dosage: 600 MG, QD
     Route: 048
     Dates: start: 2022

REACTIONS (12)
  - Haemorrhage [Unknown]
  - Thrombosis [Unknown]
  - Haemorrhoids [Unknown]
  - Flatulence [Unknown]
  - Full blood count decreased [Unknown]
  - Heart rate irregular [Unknown]
  - Blood gases [Unknown]
  - Constipation [Unknown]
  - Back pain [Unknown]
  - Fatigue [Unknown]
  - Nausea [Unknown]
  - Vomiting [Unknown]
